FAERS Safety Report 7358121-X (Version None)
Quarter: 2011Q1

REPORT INFORMATION
  Report Type: 
  Country: None (occurrence: None)
  Receive Date: 20110314
  Receipt Date: 20110314
  Transmission Date: 20110831
  Serious: No
  Sender: FDA-Public Use
  Company Number: None

PATIENT
  Sex: Female
  Weight: 22.2263 kg

DRUGS (4)
  1. LANSOPRAZOLE [Suspect]
     Indication: VOMITING
     Dosage: 30MG QD ORAL
     Route: 048
     Dates: start: 20110101
  2. LANSOPRAZOLE [Suspect]
     Indication: GASTROOESOPHAGEAL REFLUX DISEASE
     Dosage: 30MG QD ORAL
     Route: 048
     Dates: start: 20110101
  3. LANSOPRAZOLE [Suspect]
     Indication: VOMITING
     Dosage: 30MG QD ORAL
     Route: 048
     Dates: start: 20110301
  4. LANSOPRAZOLE [Suspect]
     Indication: GASTROOESOPHAGEAL REFLUX DISEASE
     Dosage: 30MG QD ORAL
     Route: 048
     Dates: start: 20110301

REACTIONS (3)
  - PRODUCT SUBSTITUTION ISSUE [None]
  - VOMITING [None]
  - RETCHING [None]
